FAERS Safety Report 7276516-X (Version None)
Quarter: 2011Q1

REPORT INFORMATION
  Report Type: 
  Country: None (occurrence: None)
  Receive Date: 20110204
  Receipt Date: 20110128
  Transmission Date: 20110831
  Serious: Yes (Other)
  Sender: FDA-Public Use
  Company Number: GB-CEPHALON-2011000508

PATIENT
  Sex: Female

DRUGS (2)
  1. ATRA [Concomitant]
  2. TRISENOX [Suspect]
     Indication: ACUTE MYELOID LEUKAEMIA
     Route: 041

REACTIONS (1)
  - ORBITAL OEDEMA [None]
